FAERS Safety Report 8054629-2 (Version None)
Quarter: 2012Q1

REPORT INFORMATION
  Report Type: 
  Country: None (occurrence: None)
  Receive Date: 20120119
  Receipt Date: 20120110
  Transmission Date: 20120608
  Serious: Yes (Death, Hospitalization, Other)
  Sender: FDA-Public Use
  Company Number: BR-AMGEN-BRASP2012002232

PATIENT
  Age: 75 Year
  Sex: Female
  Weight: 76 kg

DRUGS (7)
  1. HEMAX                              /00928302/ [Concomitant]
     Dosage: UNK
  2. BETATRINTA [Concomitant]
     Dosage: UNK
  3. MACROGOL DURA [Concomitant]
  4. ENALAPRIL MALEATE [Concomitant]
     Dosage: 20 MG, UNK
  5. DIGESAN                            /00576701/ [Concomitant]
     Dosage: UNK
  6. SIMVASTATIN [Concomitant]
     Dosage: UNK
  7. ENBREL [Suspect]
     Indication: RHEUMATOID ARTHRITIS
     Dosage: 50 MG, ONCE WEEKLY
     Route: 058
     Dates: start: 20070701, end: 20111001

REACTIONS (7)
  - HIATUS HERNIA [None]
  - RED BLOOD CELL COUNT DECREASED [None]
  - GALLBLADDER DISORDER [None]
  - GASTROINTESTINAL DISORDER [None]
  - ASTHENIA [None]
  - RESPIRATORY FAILURE [None]
  - ANAEMIA [None]
